FAERS Safety Report 7914744-8 (Version None)
Quarter: 2011Q4

REPORT INFORMATION
  Report Type: 
  Country: None (occurrence: None)
  Receive Date: 20111115
  Receipt Date: 20111109
  Transmission Date: 20120403
  Serious: Yes (Hospitalization)
  Sender: FDA-Public Use
  Company Number: PHHO2011BE16647

PATIENT
  Sex: Female
  Weight: 56.2 kg

DRUGS (9)
  1. SULFAMETHOXAZOLE AND TRIMETHOPRIM [Concomitant]
  2. INSULATARD NPH HUMAN [Concomitant]
  3. MYFORTIC [Suspect]
     Indication: RENAL TRANSPLANT
     Dosage: 720 MG, QD
     Route: 048
     Dates: start: 20091216
  4. PREDNISOLONE [Suspect]
     Indication: RENAL TRANSPLANT
     Dosage: 4 MG, QD
     Route: 048
     Dates: start: 20091107
  5. EVEROLIMUS [Suspect]
     Indication: RENAL TRANSPLANT
     Dosage: 3 MG, QD
     Route: 048
     Dates: start: 20091205, end: 20110923
  6. GLURENORM [Concomitant]
  7. OLMESARTAN MEDOXOMIL [Concomitant]
  8. NEORAL [Suspect]
     Indication: RENAL TRANSPLANT
     Dosage: 50 MG, BID
  9. BUMETANIDE [Concomitant]

REACTIONS (5)
  - INTERSTITIAL LUNG DISEASE [None]
  - BLOOD CREATININE INCREASED [None]
  - DEEP VEIN THROMBOSIS [None]
  - ANAEMIA [None]
  - DIABETES MELLITUS [None]
